FAERS Safety Report 17452115 (Version 2)
Quarter: 2020Q1

REPORT INFORMATION
  Report Type: Report from Study
  Country: CA (occurrence: CA)
  Receive Date: 20200224
  Receipt Date: 20200317
  Transmission Date: 20200409
  Serious: Yes (Death)
  Sender: FDA-Public Use
  Company Number: CA-CELGENEUS-CAN-20200206986

PATIENT
  Age: 86 Year
  Sex: Male
  Weight: 82.1 kg

DRUGS (23)
  1. MULTIVITAMIN [Concomitant]
     Active Substance: VITAMINS
     Indication: SUPPLEMENTATION THERAPY
     Dosage: 1 TABLET
     Route: 048
     Dates: start: 20170502
  2. VITAMIN B12 [Concomitant]
     Active Substance: CYANOCOBALAMIN
     Indication: SUPPLEMENTATION THERAPY
     Dosage: 1000 MILLIGRAM
     Route: 048
     Dates: start: 20170502
  3. BUTRANS [Concomitant]
     Active Substance: BUPRENORPHINE
     Indication: ARTHRITIS
     Dosage: 10 MICROGRAM
     Route: 061
     Dates: start: 20160514
  4. DICLOFENAC [Concomitant]
     Active Substance: DICLOFENAC
     Indication: NECK PAIN
     Dosage: 4.6 PERCENT
     Route: 061
     Dates: start: 20170504
  5. GABAPENTIN. [Concomitant]
     Active Substance: GABAPENTIN
     Indication: ANKLE FRACTURE
     Dosage: 600 MILLIGRAM
     Route: 048
     Dates: start: 20181106
  6. ASTRAGALUS [Concomitant]
     Indication: SUPPLEMENTATION THERAPY
     Dosage: 1000 MILLIGRAM
     Route: 048
     Dates: start: 20181220
  7. SALBUTEROL [Concomitant]
     Indication: ASTHMA
     Route: 055
     Dates: start: 20030817
  8. PSYLLIUM [Concomitant]
     Active Substance: PLANTAGO SEED
     Indication: PROPHYLAXIS
     Dosage: 1 TABLESPOON
     Route: 048
     Dates: start: 20170520
  9. SYMBICORT [Concomitant]
     Active Substance: BUDESONIDE\FORMOTEROL FUMARATE DIHYDRATE
     Indication: ASTHMA
     Dosage: 500 MICROGRAM
     Route: 055
     Dates: start: 20181106
  10. PANTOPRAZOLE [Concomitant]
     Active Substance: PANTOPRAZOLE
     Indication: GASTROOESOPHAGEAL REFLUX DISEASE
     Dosage: 40 MILLIGRAM
     Route: 048
     Dates: start: 20170313
  11. TYLENOL [Concomitant]
     Active Substance: ACETAMINOPHEN
     Indication: ARTHRITIS
     Dosage: 2 TABLET
     Route: 048
     Dates: start: 2002
  12. METHOCARBAMOL. [Concomitant]
     Active Substance: METHOCARBAMOL
     Indication: NECK PAIN
     Dosage: 400 MILLIGRAM
     Route: 048
     Dates: start: 2002
  13. HYDROCORTISONE. [Concomitant]
     Active Substance: HYDROCORTISONE
     Indication: PRURITUS
     Dosage: 2.5 PERCENT
     Route: 061
     Dates: start: 20180207
  14. ATACAND [Concomitant]
     Active Substance: CANDESARTAN CILEXETIL
     Indication: HYPERTENSION
     Dosage: 16 MILLIGRAM
     Route: 048
     Dates: start: 20181119
  15. AZACITIDINE INJECTABLE [Suspect]
     Active Substance: AZACITIDINE
     Indication: ACUTE MYELOID LEUKAEMIA
     Dosage: 75 MILLIGRAM/SQ. METER
     Route: 058
     Dates: start: 20170503, end: 20170509
  16. AZACITIDINE INJECTABLE [Suspect]
     Active Substance: AZACITIDINE
     Dosage: 37.5 MILLIGRAM/SQ. METER
     Route: 058
     Dates: start: 20191113, end: 20191119
  17. CIALIS [Concomitant]
     Active Substance: TADALAFIL
     Indication: BENIGN PROSTATIC HYPERPLASIA
     Dosage: 20 MILLIGRAM
     Route: 048
     Dates: start: 20180222
  18. CATS CLAW [Concomitant]
     Indication: SUPPLEMENTATION THERAPY
     Dosage: 970 MILLIGRAM
     Route: 048
     Dates: start: 20181220
  19. CALCIUM CARBONATE. [Concomitant]
     Active Substance: CALCIUM CARBONATE
     Indication: SUPPLEMENTATION THERAPY
     Dosage: 500 MILLIGRAM
     Route: 048
     Dates: start: 20181028
  20. BOTOX [Concomitant]
     Active Substance: ONABOTULINUMTOXINA
     Indication: ARTHRITIS
     Dosage: 100
     Route: 030
     Dates: start: 20170706
  21. DULOXETINE. [Concomitant]
     Active Substance: DULOXETINE
     Indication: NECK PAIN
     Dosage: 30 MILLIGRAM
     Route: 048
     Dates: start: 20150814
  22. HYDROCORTISONE ACETATE. [Concomitant]
     Active Substance: HYDROCORTISONE ACETATE
     Indication: PRURITUS
     Dosage: 2 PERCENT
     Route: 061
     Dates: start: 20170504
  23. VITAMIN D [Concomitant]
     Active Substance: VITAMIN D NOS
     Indication: SUPPLEMENTATION THERAPY
     Dosage: 1000 IU (INTERNATIONAL UNIT)
     Route: 048
     Dates: start: 20170502

REACTIONS (1)
  - Acute myeloid leukaemia recurrent [Fatal]

NARRATIVE: CASE EVENT DATE: 20200215
